FAERS Safety Report 7798356-5 (Version None)
Quarter: 2011Q4

REPORT INFORMATION
  Report Type: 
  Country: None (occurrence: None)
  Receive Date: 20111005
  Receipt Date: 20111003
  Transmission Date: 20120403
  Serious: Yes (Death)
  Sender: FDA-Public Use
  Company Number: US-CEPHALON-2011005158

PATIENT
  Sex: Female

DRUGS (3)
  1. FENTORA [Suspect]
     Route: 002
  2. FENTANYL [Concomitant]
  3. DILAUDID [Concomitant]

REACTIONS (1)
  - LUNG NEOPLASM MALIGNANT [None]
